FAERS Safety Report 4280286-7 (Version None)
Quarter: 2004Q1

REPORT INFORMATION
  Report Type: 
  Country: None (occurrence: None)
  Receive Date: 20040126
  Receipt Date: 20040114
  Transmission Date: 20041129
  Serious: Yes (Hospitalization)
  Sender: FDA-Public Use
  Company Number: 200308621

PATIENT
  Age: 65 Year
  Sex: Male

DRUGS (10)
  1. STREPTASE [Suspect]
     Dosage: 1.5 MIU DAILY IV
     Route: 042
     Dates: start: 20030121, end: 20030121
  2. ASPIRIN [Suspect]
     Indication: MYOCARDIAL ISCHAEMIA
     Dosage: 250 MG DAILY PO
     Route: 048
     Dates: start: 20030121, end: 20030201
  3. ENOXAPARIN OR PLACEBO VS. HEPARIN OR PLACEBO [Suspect]
     Indication: MYOCARDIAL INFARCTION
     Dates: start: 20030121, end: 20030122
  4. CLOPIDOGREL BISULFATE [Suspect]
     Indication: STENT PLACEMENT
     Dosage: 75 MG DAILY PO
     Route: 048
     Dates: start: 20030121, end: 20030201
  5. CLEXANE [Suspect]
     Dosage: 80 MG DAILY SC
     Route: 058
     Dates: start: 20030122, end: 20030122
  6. NORMITEN [Concomitant]
  7. ISOKET [Concomitant]
  8. VABEN [Concomitant]
  9. SIMOVIL [Concomitant]
  10. ENALAPRIL MALEATE [Concomitant]

REACTIONS (2)
  - PUNCTURE SITE HAEMORRHAGE [None]
  - UPPER GASTROINTESTINAL HAEMORRHAGE [None]
